FAERS Safety Report 10039614 (Version 2)
Quarter: 2014Q2

REPORT INFORMATION
  Report Type: Spontaneous
  Country: PL (occurrence: PL)
  Receive Date: 20140326
  Receipt Date: 20140408
  Transmission Date: 20141212
  Serious: Yes (Other)
  Sender: FDA-Public Use
  Company Number: PL-BAXTER-2014BAX013973

PATIENT
  Age: 6 Year
  Sex: Male

DRUGS (11)
  1. KIOVIG 100 MG/ML SOLUTION FOR INFUSION [Suspect]
     Indication: HISTIOCYTOSIS HAEMATOPHAGIC
     Dosage: 1 G/KG
     Route: 042
  2. KIOVIG 100 MG/ML SOLUTION FOR INFUSION [Suspect]
     Indication: OFF LABEL USE
  3. METHYLPREDNISOLONE [Suspect]
     Indication: HISTIOCYTOSIS HAEMATOPHAGIC
     Route: 065
  4. METHYLPREDNISOLONE [Suspect]
     Route: 065
  5. PREDNISONE [Concomitant]
     Indication: JUVENILE IDIOPATHIC ARTHRITIS
     Route: 065
  6. CYCLOSPORIN A [Concomitant]
     Indication: RESPIRATORY TRACT INFECTION
     Route: 065
  7. CEFUROXIME [Concomitant]
     Indication: PRODUCT USED FOR UNKNOWN INDICATION
     Route: 065
  8. ETANERCEPT [Concomitant]
     Indication: JUVENILE IDIOPATHIC ARTHRITIS
     Route: 065
  9. KETOCONAZOLE [Concomitant]
     Indication: ORAL MUCOSA EROSION
     Route: 065
  10. ACYCLOVIR                          /00587301/ [Concomitant]
     Indication: ORAL MUCOSA EROSION
     Route: 065
  11. METHOTREXATE [Concomitant]
     Indication: JUVENILE IDIOPATHIC ARTHRITIS
     Route: 065

REACTIONS (4)
  - Arthritis [Unknown]
  - Serum ferritin increased [Unknown]
  - Histiocytosis haematophagic [Recovering/Resolving]
  - Oral mucosa erosion [Unknown]
